FAERS Safety Report 12067731 (Version 1)
Quarter: 2016Q1

REPORT INFORMATION
  Report Type: Report from Study
  Country: US (occurrence: None)
  Receive Date: 20160210
  Receipt Date: 20160210
  Transmission Date: 20160526
  Serious: Yes (Other)
  Sender: FDA-Public Use
  Company Number: 2016UCU075000017

PATIENT
  Age: 38 Year
  Sex: Female
  Weight: 66 kg

DRUGS (23)
  1. ENTYVIO [Concomitant]
     Active Substance: VEDOLIZUMAB
  2. ERGOCALCIFEROL. [Concomitant]
     Active Substance: ERGOCALCIFEROL
  3. MAGNESIUM OXIDE. [Concomitant]
     Active Substance: MAGNESIUM OXIDE
  4. PROMETHAZINE [Concomitant]
     Active Substance: PROMETHAZINE\PROMETHAZINE HYDROCHLORIDE
  5. MERCAPTOPURINE. [Suspect]
     Active Substance: MERCAPTOPURINE
     Indication: CROHN^S DISEASE
     Route: 048
     Dates: start: 20100701
  6. MESALAMINE. [Concomitant]
     Active Substance: MESALAMINE
  7. CIPROFLOXACIN. [Concomitant]
     Active Substance: CIPROFLOXACIN
  8. AZATHIOPRINE. [Concomitant]
     Active Substance: AZATHIOPRINE
  9. FENTANYL. [Concomitant]
     Active Substance: FENTANYL
  10. HYDROCODONE BITARTRATE AND ACETAMINOPHEN [Concomitant]
     Active Substance: ACETAMINOPHEN\HYDROCODONE BITARTRATE
  11. LORATADINE. [Concomitant]
     Active Substance: LORATADINE
  12. BUDESONIDE. [Suspect]
     Active Substance: BUDESONIDE
     Indication: CROHN^S DISEASE
     Route: 048
     Dates: start: 201601
  13. METRONIDAZOLE. [Concomitant]
     Active Substance: METRONIDAZOLE
  14. METHOTREXATE [Concomitant]
     Active Substance: METHOTREXATE
  15. CEPHALEXIN. [Concomitant]
     Active Substance: CEPHALEXIN
  16. NATALIZUMAB [Concomitant]
     Active Substance: NATALIZUMAB
  17. AMITRIPTYLINE [Concomitant]
     Active Substance: AMITRIPTYLINE
  18. CYANOCOBALAMIN. [Concomitant]
     Active Substance: CYANOCOBALAMIN
  19. CIMZIA [Suspect]
     Active Substance: CERTOLIZUMAB PEGOL
     Indication: CROHN^S DISEASE
     Dates: start: 20090910
  20. ADALIMUMAB [Concomitant]
     Active Substance: ADALIMUMAB
  21. ONDANSETRON [Concomitant]
     Active Substance: ONDANSETRON
  22. PREDNISONE. [Concomitant]
     Active Substance: PREDNISONE
  23. INFLIXIMAB [Concomitant]
     Active Substance: INFLIXIMAB

REACTIONS (1)
  - Pneumonia [None]

NARRATIVE: CASE EVENT DATE: 20160125
